FAERS Safety Report 16431168 (Version 3)
Quarter: 2020Q3

REPORT INFORMATION
  Report Type: Spontaneous
  Country: US (occurrence: US)
  Receive Date: 20190614
  Receipt Date: 20200727
  Transmission Date: 20201102
  Serious: No
  Sender: FDA-Public Use
  Company Number: US-PFIZER INC-2019256140

PATIENT
  Age: 60 Year
  Sex: Male
  Weight: 84 kg

DRUGS (22)
  1. LYRICA [Suspect]
     Active Substance: PREGABALIN
     Indication: NERVOUS SYSTEM DISORDER
     Dosage: 300 MG, 3X/DAY
     Route: 048
     Dates: start: 2018
  2. LYRICA [Suspect]
     Active Substance: PREGABALIN
     Dosage: 300 MG, 3X/DAY
     Route: 048
     Dates: start: 20190506
  3. PROVIGIL [Concomitant]
     Active Substance: MODAFINIL
     Dosage: 200 MG, DAILY
     Route: 048
  4. LYRICA [Suspect]
     Active Substance: PREGABALIN
     Indication: PARTIAL SEIZURES
     Dosage: 150 MG, 2X/DAY
     Route: 048
     Dates: start: 2018, end: 2018
  5. LYRICA [Suspect]
     Active Substance: PREGABALIN
     Dosage: 300 MG, DAILY, (TAKE 1 CAPSULE BY MOUTH DAILY)
     Route: 048
  6. MOBIC [Concomitant]
     Active Substance: MELOXICAM
     Dosage: 15 MG, DAILY
     Route: 048
  7. ZANAFLEX [Concomitant]
     Active Substance: TIZANIDINE HYDROCHLORIDE
     Dosage: 2 MG, 3X/DAY
     Route: 048
  8. ADDERALL [Concomitant]
     Active Substance: AMPHETAMINE ASPARTATE\AMPHETAMINE SULFATE\DEXTROAMPHETAMINE SACCHARATE\DEXTROAMPHETAMINE SULFATE
     Dosage: 20 MG, 2X/DAY
     Route: 048
  9. CETIRIZINE HCL [Concomitant]
     Active Substance: CETIRIZINE HYDROCHLORIDE
     Dosage: 10 MG, UNK
  10. BENADRYL [Concomitant]
     Active Substance: DIPHENHYDRAMINE HYDROCHLORIDE
     Indication: SLEEP DISORDER
     Dosage: 25 MG, AS NEEDED(NIGHTLY)
     Route: 048
  11. SYNTHROID [Concomitant]
     Active Substance: LEVOTHYROXINE SODIUM
     Dosage: 75 UG, DAILY
     Route: 048
  12. IMODIUM [Concomitant]
     Active Substance: LOPERAMIDE HYDROCHLORIDE
     Dosage: 2 MG, 2X/DAY
     Route: 048
  13. CAFFEINE. [Concomitant]
     Active Substance: CAFFEINE
     Indication: HYPERSOMNIA
     Dosage: 250 MG, 1X/DAY(EVERY MORNING)
  14. CRESTOR [Concomitant]
     Active Substance: ROSUVASTATIN CALCIUM
     Dosage: 20 MG, 1X/DAY
     Route: 048
  15. KLONOPIN [Concomitant]
     Active Substance: CLONAZEPAM
     Dosage: 1 MG, 2X/DAY
     Route: 048
  16. GINKGO BILOBA [Concomitant]
     Active Substance: GINKGO
     Dosage: 360 MG, 3X/DAY
     Route: 048
  17. SIMETHICONE (DIMETHICONE) [Concomitant]
     Active Substance: DIMETHICONE
     Dosage: 80 MG, AS NEEDED
     Route: 048
  18. LYRICA [Suspect]
     Active Substance: PREGABALIN
     Indication: NEUROPATHY PERIPHERAL
     Dosage: 300 MG, 3X/DAY
     Route: 048
     Dates: start: 2010, end: 201808
  19. TOPROL XL [Concomitant]
     Active Substance: METOPROLOL SUCCINATE
     Dosage: 25 MG, DAILY
     Route: 048
  20. PRILOSEC [Concomitant]
     Active Substance: OMEPRAZOLE MAGNESIUM
     Dosage: 20 MG, AS NEEDED(DAILY)
     Route: 048
  21. SELSUN [Concomitant]
     Active Substance: SELENIUM SULFIDE
     Dosage: UNK UNK, DAILY(APPLY AND LEAVE FOR 10 MINUTES THEN RINSE; USE FOR 7 DAYS, THEN MONTHLY FOR 3 MONTHS)
  22. MELATONIN [Concomitant]
     Active Substance: MELATONIN
     Dosage: 10 MG, AS NEEDED(NIGHTLY)
     Route: 048

REACTIONS (3)
  - Memory impairment [Unknown]
  - Intentional product use issue [Unknown]
  - Prescribed overdose [Unknown]

NARRATIVE: CASE EVENT DATE: 2010
